FAERS Safety Report 21422517 (Version 3)
Quarter: 2022Q4

REPORT INFORMATION
  Report Type: Spontaneous
  Country: JP (occurrence: JP)
  Receive Date: 20221007
  Receipt Date: 20221111
  Transmission Date: 20230113
  Serious: Yes (Hospitalization, Other)
  Sender: FDA-Public Use
  Company Number: JP-MH-2022M1110251AA

PATIENT
  Age: 75 Year
  Sex: Female
  Weight: 50.8 kg

DRUGS (13)
  1. CARBOPLATIN [Suspect]
     Active Substance: CARBOPLATIN
     Indication: Ovarian cancer stage III
     Dosage: UNK
     Route: 042
     Dates: start: 20220621, end: 20220712
  2. CARBOPLATIN [Suspect]
     Active Substance: CARBOPLATIN
     Indication: Neoadjuvant therapy
     Dosage: 429 MILLIGRAM, QD, TOTAL 1361 MG
     Route: 042
     Dates: start: 20220804
  3. CARBOPLATIN [Suspect]
     Active Substance: CARBOPLATIN
     Dosage: 424.5 MILLIGRAM, QD, (AUC5), TOTAL 1785.5 MG
     Route: 042
     Dates: start: 20220916
  4. PACLITAXEL [Suspect]
     Active Substance: PACLITAXEL
     Indication: Ovarian cancer stage III
     Dosage: UNK
     Route: 042
     Dates: start: 20220621, end: 20220712
  5. PACLITAXEL [Suspect]
     Active Substance: PACLITAXEL
     Indication: Neoadjuvant therapy
     Dosage: 244.3 MILLIGRAM, QD, TOTAL 739.9 MG
     Route: 042
     Dates: start: 20220804
  6. PACLITAXEL [Suspect]
     Active Substance: PACLITAXEL
     Dosage: 244.3 MILLIGRAM, QD, (175MG/M2), TOTAL 984.2 MG
     Route: 042
     Dates: start: 20220916
  7. PALONOSETRON [Concomitant]
     Active Substance: PALONOSETRON
     Indication: Prophylaxis of nausea and vomiting
     Dosage: 0.75 MILLIGRAM, QD
     Route: 042
     Dates: start: 20220916
  8. POLARAMINE [Concomitant]
     Active Substance: DEXCHLORPHENIRAMINE MALEATE
     Indication: Allergy prophylaxis
     Dosage: 5 MILLIGRAM, QD
     Route: 042
     Dates: start: 20220916
  9. DECADRON [Concomitant]
     Active Substance: DEXAMETHASONE
     Indication: Allergy prophylaxis
     Dosage: 6.6 MILLIGRAM, QD
     Route: 042
  10. DECADRON [Concomitant]
     Active Substance: DEXAMETHASONE
     Dosage: 19.8 MILLIGRAM, QD
     Route: 042
     Dates: start: 20220916
  11. APREPITANT [Concomitant]
     Active Substance: APREPITANT
     Indication: Prophylaxis of nausea and vomiting
     Dosage: 125 MILLIGRAM, QD
     Route: 048
     Dates: start: 20220916, end: 20220916
  12. APREPITANT [Concomitant]
     Active Substance: APREPITANT
     Indication: Prophylaxis of nausea and vomiting
     Dosage: 80 MILLIGRAM, QD
     Route: 048
     Dates: start: 20220917, end: 20220918
  13. FAMOTIDINE ISEI [Concomitant]
     Indication: Allergy prophylaxis
     Dosage: 20 MILLIGRAM, QD
     Route: 042
     Dates: start: 20220916

REACTIONS (3)
  - Myelosuppression [Recovered/Resolved]
  - Acute coronary syndrome [Recovering/Resolving]
  - Neutrophil count decreased [Recovered/Resolved]

NARRATIVE: CASE EVENT DATE: 20220818
